FAERS Safety Report 5020862-7 (Version None)
Quarter: 2006Q2

REPORT INFORMATION
  Report Type: 
  Country: None (occurrence: None)
  Receive Date: 20060414
  Receipt Date: 20051121
  Transmission Date: 20061013
  Serious: Yes (Other)
  Sender: FDA-Public Use
  Company Number: US-JNJFOC-20051105906

PATIENT
  Age: 62 Year
  Sex: Male
  Weight: 82.5547 kg

DRUGS (6)
  1. ULTRAM [Suspect]
     Indication: FATIGUE
     Dosage: 200 MG, IN 1 DAY, ORAL
     Route: 048
     Dates: start: 20010201, end: 20050401
  2. ULTRAM [Suspect]
     Indication: NEURALGIA
     Dosage: 200 MG, IN 1 DAY, ORAL
     Route: 048
     Dates: start: 20010201, end: 20050401
  3. LISINOPRIL [Concomitant]
  4. KLONOPIN [Concomitant]
  5. NEURONTIN [Concomitant]
  6. ASPIRIN [Concomitant]

REACTIONS (3)
  - BLOOD PRESSURE INCREASED [None]
  - NAUSEA [None]
  - PALPITATIONS [None]
